FAERS Safety Report 4839164-4 (Version None)
Quarter: 2005Q4

REPORT INFORMATION
  Report Type: 
  Country: None (occurrence: None)
  Receive Date: 20051128
  Receipt Date: 20051128
  Transmission Date: 20060501
  Serious: No
  Sender: FDA-Public Use
  Company Number: None

PATIENT
  Age: 57 Year
  Sex: Male
  Weight: 100.2449 kg

DRUGS (5)
  1. LISINOPRIL [Suspect]
     Indication: CORONARY ARTERY DISEASE
     Dosage: 5MG   QDAY  PO
     Route: 048
     Dates: start: 20051003, end: 20051123
  2. LISINOPRIL [Suspect]
     Indication: HYPERTENSION
     Dosage: 5MG   QDAY  PO
     Route: 048
     Dates: start: 20051003, end: 20051123
  3. ZOCOR [Concomitant]
  4. PLAVIX [Concomitant]
  5. ATENOLOL [Concomitant]

REACTIONS (2)
  - BLOOD PRESSURE INADEQUATELY CONTROLLED [None]
  - PHARMACEUTICAL PRODUCT COMPLAINT [None]
